FAERS Safety Report 21908627 (Version 1)
Quarter: 2023Q1

REPORT INFORMATION
  Report Type: Spontaneous
  Country: US (occurrence: None)
  Receive Date: 20230124
  Receipt Date: 20230124
  Transmission Date: 20230418
  Serious: Yes (Other)
  Sender: FDA-Public Use
  Company Number: None

PATIENT
  Age: 57 Year
  Sex: Female
  Weight: 80.95 kg

DRUGS (1)
  1. VANCOMYCIN [Suspect]
     Active Substance: VANCOMYCIN
     Dosage: FREQUENCY : TWICE A DAY;?
     Route: 042
     Dates: start: 20230119, end: 20230122

REACTIONS (7)
  - Adverse drug reaction [None]
  - Oxygen saturation decreased [None]
  - Chest discomfort [None]
  - Palpitations [None]
  - Blood pressure increased [None]
  - Body temperature increased [None]
  - Fatigue [None]

NARRATIVE: CASE EVENT DATE: 20230122
